FAERS Safety Report 9537475 (Version 3)
Quarter: 2013Q3

REPORT INFORMATION
  Report Type: Spontaneous
  Country: JP (occurrence: JP)
  Receive Date: 20130919
  Receipt Date: 20130927
  Transmission Date: 20140515
  Serious: Yes (Other)
  Sender: FDA-Public Use
  Company Number: JP-GLAXOSMITHKLINE-B0923556A

PATIENT
  Age: 59 Year
  Sex: Female

DRUGS (6)
  1. LAMICTAL [Suspect]
     Indication: BIPOLAR DISORDER
     Dosage: 300MG PER DAY
     Route: 048
     Dates: end: 20130913
  2. LITHIUM CARBONATE [Concomitant]
     Route: 048
  3. PSYCHOTROPIC DRUGS [Concomitant]
     Route: 065
  4. HYPNOTICS [Concomitant]
     Route: 065
  5. SEDATIVES [Concomitant]
  6. ANTI-ANXIETY MED- NAME UNKNOWN [Concomitant]

REACTIONS (2)
  - Respiratory arrest [Recovered/Resolved]
  - Rash [Recovering/Resolving]
